FAERS Safety Report 5088221-9 (Version None)
Quarter: 2006Q3

REPORT INFORMATION
  Report Type: 
  Country: None (occurrence: None)
  Receive Date: 20060823
  Receipt Date: 20060823
  Transmission Date: 20061208
  Serious: Yes (Hospitalization)
  Sender: FDA-Public Use
  Company Number: None

PATIENT
  Age: 13 Year
  Sex: Female
  Weight: 54 kg

DRUGS (1)
  1. ONDANSETRON [Suspect]
     Indication: POST PROCEDURAL NAUSEA
     Dosage: 4 MG  ONCE  IV
     Route: 042
     Dates: start: 20060209

REACTIONS (2)
  - HYPERREFLEXIA [None]
  - UNRESPONSIVE TO STIMULI [None]
